FAERS Safety Report 4303182-5 (Version None)
Quarter: 2004Q1

REPORT INFORMATION
  Report Type: 
  Country: None (occurrence: None)
  Receive Date: 20040126
  Receipt Date: 20030926
  Transmission Date: 20041129
  Serious: No
  Sender: FDA-Public Use
  Company Number: USA030948376

PATIENT
  Age: 7 Year
  Sex: Male
  Weight: 20 kg

DRUGS (2)
  1. STRATTERA [Suspect]
     Indication: ATTENTION DEFICIT/HYPERACTIVITY DISORDER
     Dosage: 25 MG
     Dates: start: 20030825
  2. METADATE (METHYLPHENIDATE) [Concomitant]

REACTIONS (4)
  - ABNORMAL BEHAVIOUR [None]
  - DRUG INEFFECTIVE [None]
  - HEAD BANGING [None]
  - WEIGHT DECREASED [None]
